FAERS Safety Report 15348644 (Version 1)
Quarter: 2018Q3

REPORT INFORMATION
  Report Type: Spontaneous
  Country: US (occurrence: US)
  Receive Date: 20180829
  Receipt Date: 20180829
  Transmission Date: 20181010
  Serious: Yes (Other)
  Sender: FDA-Public Use
  Company Number: None

PATIENT
  Age: 60 Year
  Sex: Female
  Weight: 81 kg

DRUGS (5)
  1. BABY ASPIRIN [Concomitant]
     Active Substance: ASPIRIN
  2. FISH OIL [Concomitant]
     Active Substance: FISH OIL
  3. LISINOPRIL. [Suspect]
     Active Substance: LISINOPRIL
     Indication: HYPERTENSION
     Dosage: ?          QUANTITY:90 TABLET(S);?
     Route: 048
     Dates: start: 20180808, end: 20180813
  4. SUPER B COMPLEX [Concomitant]
     Active Substance: CYANOCOBALAMIN\DEXPANTHENOL\NIACINAMIDE\PYRIDOXINE HYDROCHLORIDE\RIBOFLAVIN 5^-PHOSPHATE SODIUM\THIAMINE HYDROCHLORIDE\VITAMIN B COMPLEX
  5. MAGNESIUM [Concomitant]
     Active Substance: MAGNESIUM

REACTIONS (4)
  - Flushing [None]
  - Headache [None]
  - Nausea [None]
  - Hypersensitivity [None]

NARRATIVE: CASE EVENT DATE: 20180808
